FAERS Safety Report 14296716 (Version 1)
Quarter: 2017Q4

REPORT INFORMATION
  Report Type: Spontaneous
  Country: JP (occurrence: JP)
  Receive Date: 20171218
  Receipt Date: 20171218
  Transmission Date: 20180321
  Serious: Yes (Other)
  Sender: FDA-Public Use
  Company Number: JP-PFIZER INC-2017534790

PATIENT
  Age: 6 Decade
  Sex: Male

DRUGS (7)
  1. NEXIUM [Concomitant]
     Active Substance: ESOMEPRAZOLE MAGNESIUM
  2. AZOSEMIDE [Concomitant]
     Active Substance: AZOSEMIDE
  3. XARELTO [Concomitant]
     Active Substance: RIVAROXABAN
  4. SELARA 25MG [Suspect]
     Active Substance: EPLERENONE
     Indication: CARDIAC FAILURE CHRONIC
     Dosage: 25 MG, DAILY
     Route: 048
     Dates: start: 20171110, end: 20171115
  5. SAMSCA [Concomitant]
     Active Substance: TOLVAPTAN
  6. BISOPROLOL [Concomitant]
     Active Substance: BISOPROLOL
  7. VASOLAN [Concomitant]
     Active Substance: VERAPAMIL HYDROCHLORIDE

REACTIONS (1)
  - Acute kidney injury [Recovered/Resolved]

NARRATIVE: CASE EVENT DATE: 20171115
